FAERS Safety Report 9267041 (Version 1)
Quarter: 2013Q2

REPORT INFORMATION
  Report Type: Spontaneous
  Country: US (occurrence: US)
  Receive Date: 20130502
  Receipt Date: 20130502
  Transmission Date: 20140414
  Serious: No
  Sender: FDA-Public Use
  Company Number: US-PFIZER INC-2013136349

PATIENT
  Age: 42 Year
  Sex: Male
  Weight: 79.4 kg

DRUGS (4)
  1. LYRICA [Suspect]
     Indication: BACK PAIN
     Dosage: 75 MG, 2X/DAY
     Route: 048
  2. LYRICA [Suspect]
     Indication: ARTHRALGIA
  3. METOPROLOL [Concomitant]
     Indication: HYPERTENSION
     Dosage: 100 MG, 1X/DAY
  4. GEODON [Concomitant]
     Indication: DEPRESSION
     Dosage: 60 MG, 2X/DAY

REACTIONS (3)
  - Increased appetite [Unknown]
  - Hyperphagia [Unknown]
  - Weight increased [Unknown]
